FAERS Safety Report 12880726 (Version 1)
Quarter: 2016Q4

REPORT INFORMATION
  Report Type: Spontaneous
  Country: US (occurrence: US)
  Receive Date: 20161025
  Receipt Date: 20161025
  Transmission Date: 20170207
  Serious: No
  Sender: FDA-Public Use
  Company Number: US-GLAXOSMITHKLINE-US2016154703

PATIENT
  Age: 77 Year
  Sex: Male

DRUGS (2)
  1. VOLTAREN [Suspect]
     Active Substance: DICLOFENAC SODIUM
     Indication: ARTHRALGIA
     Dosage: UNK
     Dates: start: 20161009
  2. VOLTAREN [Suspect]
     Active Substance: DICLOFENAC SODIUM
     Indication: JOINT SWELLING

REACTIONS (4)
  - Inappropriate schedule of drug administration [Unknown]
  - Prescription drug used without a prescription [Unknown]
  - Expired product administered [Unknown]
  - Unintentional use for unapproved indication [Unknown]
